FAERS Safety Report 14241352 (Version 2)
Quarter: 2018Q1

REPORT INFORMATION
  Report Type: Spontaneous
  Country: JP (occurrence: JP)
  Receive Date: 20171130
  Receipt Date: 20180101
  Transmission Date: 20180508
  Serious: Yes (Other)
  Sender: FDA-Public Use
  Company Number: JP-ROCHE-2031727

PATIENT

DRUGS (2)
  1. ACTEMRA [Suspect]
     Active Substance: TOCILIZUMAB
     Indication: RHEUMATOID ARTHRITIS
     Dosage: UNCERTAIN DOSAGE
     Route: 041
     Dates: start: 201111
  2. ETANERCEPT [Concomitant]
     Active Substance: ETANERCEPT
     Dosage: DOSAGE IS UNCERTAIN.?(GENETICAL RECOMBINATION)
     Route: 065

REACTIONS (1)
  - Hepatic cirrhosis [Recovering/Resolving]

NARRATIVE: CASE EVENT DATE: 20171120
